FAERS Safety Report 7402098-5 (Version None)
Quarter: 2011Q1

REPORT INFORMATION
  Report Type: 
  Country: None (occurrence: None)
  Receive Date: 20110330
  Receipt Date: 20110315
  Transmission Date: 20110831
  Serious: Yes (Other)
  Sender: FDA-Public Use
  Company Number: 2011-0490

PATIENT
  Age: 29 Year
  Sex: Female

DRUGS (1)
  1. DYSPORT [Suspect]
     Indication: SKIN WRINKLING
     Dosage: 50 UNITS (50 UNITS,SINGLE CYCLE),SUBCUTANEOUS
     Route: 058
     Dates: start: 20110210, end: 20110210

REACTIONS (10)
  - EMOTIONAL DISTRESS [None]
  - LOCAL SWELLING [None]
  - DYSPNOEA [None]
  - SWELLING FACE [None]
  - APHASIA [None]
  - LYMPHADENOPATHY [None]
  - BURNING SENSATION [None]
  - NEURALGIA [None]
  - ANXIETY [None]
  - PRODUCT QUALITY ISSUE [None]
